FAERS Safety Report 26185127 (Version 1)
Quarter: 2025Q4

REPORT INFORMATION
  Report Type: Spontaneous
  Country: GB (occurrence: GB)
  Receive Date: 20251222
  Receipt Date: 20251222
  Transmission Date: 20260117
  Serious: Yes (Other)
  Sender: MICRO LABS LIMITED
  Company Number: None

PATIENT

DRUGS (1)
  1. AMOXICILLIN [Suspect]
     Active Substance: AMOXICILLIN
     Indication: Lower respiratory tract infection

REACTIONS (8)
  - Choking [Unknown]
  - Retching [Unknown]
  - Chest pain [Unknown]
  - Cough [Unknown]
  - Feeding disorder [Unknown]
  - Dyspnoea [Unknown]
  - Abdominal pain [Unknown]
  - Drug ineffective [Unknown]
